FAERS Safety Report 9614603 (Version 2)
Quarter: 2013Q4

REPORT INFORMATION
  Report Type: Spontaneous
  Country: IT (occurrence: IT)
  Receive Date: 20131011
  Receipt Date: 20131218
  Transmission Date: 20140711
  Serious: Yes (Hospitalization)
  Sender: FDA-Public Use
  Company Number: IT-SA-2013SA098616

PATIENT
  Age: 82 Year
  Sex: Male

DRUGS (11)
  1. CARVEDILOL [Suspect]
     Indication: PRODUCT USED FOR UNKNOWN INDICATION
     Route: 048
     Dates: start: 20080601, end: 20130918
  2. LASIX [Suspect]
     Indication: PRODUCT USED FOR UNKNOWN INDICATION
     Route: 048
     Dates: start: 20080601, end: 20130918
  3. ALDACTONE [Suspect]
     Indication: PRODUCT USED FOR UNKNOWN INDICATION
     Route: 048
     Dates: start: 20130101, end: 20130918
  4. MICARDIS [Suspect]
     Indication: PRODUCT USED FOR UNKNOWN INDICATION
     Route: 048
     Dates: start: 20130101, end: 20130918
  5. AMIODARONE [Concomitant]
     Route: 048
     Dates: start: 20080601
  6. ROSUVASTATIN CALCIUM [Concomitant]
     Route: 048
  7. AVODART [Concomitant]
     Route: 048
  8. ZYLORIC [Concomitant]
     Dosage: STRENGTH: 300 MG
     Route: 048
  9. TAVOR [Concomitant]
     Dosage: STRENGTH: 1 MG
  10. COUMADIN [Concomitant]
     Dosage: STRENGTH: 5 MG
     Route: 048
  11. LANSOX [Concomitant]

REACTIONS (4)
  - Hypotension [Recovering/Resolving]
  - Dehydration [Recovering/Resolving]
  - Syncope [Recovering/Resolving]
  - Renal failure acute [Recovering/Resolving]
